FAERS Safety Report 14177005 (Version 1)
Quarter: 2017Q4

REPORT INFORMATION
  Report Type: Spontaneous
  Country: US (occurrence: US)
  Receive Date: 20171110
  Receipt Date: 20171110
  Transmission Date: 20180321
  Serious: Yes (Hospitalization)
  Sender: FDA-Public Use
  Company Number: None

PATIENT
  Age: 73 Year
  Sex: Male
  Weight: 83.4 kg

DRUGS (12)
  1. ASPIRIN. [Concomitant]
     Active Substance: ASPIRIN
  2. DIGOXIN. [Concomitant]
     Active Substance: DIGOXIN
  3. CLOPIDOGREL [Concomitant]
     Active Substance: CLOPIDOGREL BISULFATE
  4. CANAGLIFLOZIN [Suspect]
     Active Substance: CANAGLIFLOZIN
     Indication: TYPE 2 DIABETES MELLITUS
     Route: 048
     Dates: start: 20171030, end: 20171108
  5. FUROSEMIDE. [Concomitant]
     Active Substance: FUROSEMIDE
  6. METOPROLOL XL [Concomitant]
     Active Substance: METOPROLOL SUCCINATE
  7. POTASSIUM [Concomitant]
     Active Substance: POTASSIUM
  8. TESTOSTERONE. [Concomitant]
     Active Substance: TESTOSTERONE
  9. LOSARTAN. [Concomitant]
     Active Substance: LOSARTAN
  10. METFORMIN [Concomitant]
     Active Substance: METFORMIN HYDROCHLORIDE
  11. PRAVASTATIN. [Concomitant]
     Active Substance: PRAVASTATIN
  12. LINAGLIPTIN [Concomitant]
     Active Substance: LINAGLIPTIN

REACTIONS (1)
  - Hyperglycaemia [None]

NARRATIVE: CASE EVENT DATE: 20171108
